FAERS Safety Report 17105451 (Version 1)
Quarter: 2019Q4

REPORT INFORMATION
  Report Type: Spontaneous
  Country: NO (occurrence: NO)
  Receive Date: 20191203
  Receipt Date: 20191203
  Transmission Date: 20200122
  Serious: Yes (Other)
  Sender: FDA-Public Use
  Company Number: NO-MYLANLABS-2019M1116834

PATIENT
  Sex: Male
  Weight: 95 kg

DRUGS (3)
  1. ATORVASTATIN MYLAN [Suspect]
     Active Substance: ATORVASTATIN
     Indication: BLOOD CHOLESTEROL INCREASED
     Dosage: 20 MILLIGRAM, QD
     Dates: start: 2009
  2. ORACEA [Concomitant]
     Active Substance: DOXYCYCLINE
     Dosage: UNK
     Dates: start: 2013
  3. ACETYLSALICYLSYRE [Concomitant]
     Active Substance: ASPIRIN
     Dosage: UNK
     Dates: start: 2008

REACTIONS (5)
  - Pancreatitis acute [Not Recovered/Not Resolved]
  - Myalgia [Unknown]
  - Musculoskeletal stiffness [Unknown]
  - Pancreatitis chronic [Not Recovered/Not Resolved]
  - Memory impairment [Not Recovered/Not Resolved]

NARRATIVE: CASE EVENT DATE: 2009
